FAERS Safety Report 18879180 (Version 1)
Quarter: 2021Q1

REPORT INFORMATION
  Report Type: Spontaneous
  Country: US (occurrence: US)
  Receive Date: 20210211
  Receipt Date: 20210211
  Transmission Date: 20210420
  Serious: No
  Sender: FDA-Public Use
  Company Number: None

PATIENT
  Age: 31 Year
  Sex: Female
  Weight: 110.6 kg

DRUGS (6)
  1. EVEROLIMUS. [Suspect]
     Active Substance: EVEROLIMUS
     Indication: BREAST CANCER
     Route: 048
     Dates: start: 20210120, end: 20210211
  2. COLACE [Concomitant]
     Active Substance: DOCUSATE SODIUM
  3. MAGIC MOUTHWASH [Concomitant]
     Active Substance: DIPHENHYDRAMINE HYDROCHLORIDE\LIDOCAINE HYDROCHLORIDE\NYSTATIN
  4. LETROZOLE. [Concomitant]
     Active Substance: LETROZOLE
  5. ZOMETA [Concomitant]
     Active Substance: ZOLEDRONIC ACID
  6. HYDROCODONE?ACETAMINOPHEN [Concomitant]
     Active Substance: ACETAMINOPHEN\HYDROCODONE

REACTIONS (2)
  - Hepatic enzyme abnormal [None]
  - Disease progression [None]

NARRATIVE: CASE EVENT DATE: 20210211
